FAERS Safety Report 7570909-9 (Version None)
Quarter: 2011Q2

REPORT INFORMATION
  Report Type: 
  Country: None (occurrence: None)
  Receive Date: 20110622
  Receipt Date: 20110622
  Transmission Date: 20111010
  Serious: Yes (Disabling, Other)
  Sender: FDA-Public Use
  Company Number: None

PATIENT
  Age: 73 Year
  Sex: Male
  Weight: 86.1834 kg

DRUGS (1)
  1. NIACIN [Suspect]
     Indication: BLOOD CHOLESTEROL INCREASED
     Dosage: 250MG 1 A DAY 7 DAYS
     Dates: start: 20110511, end: 20110526

REACTIONS (5)
  - ERYTHEMA [None]
  - PRURITUS [None]
  - VISUAL ACUITY REDUCED [None]
  - CEREBRAL HAEMORRHAGE [None]
  - VISION BLURRED [None]
